FAERS Safety Report 8165464-9 (Version None)
Quarter: 2012Q1

REPORT INFORMATION
  Report Type: 
  Country: None (occurrence: None)
  Receive Date: 20120227
  Receipt Date: 20110328
  Transmission Date: 20120608
  Serious: No
  Sender: FDA-Public Use
  Company Number: US-MYLANLABS-2011S1004189

PATIENT

DRUGS (1)
  1. METOPROLOL SUCCINATE [Suspect]
     Indication: BLOOD PRESSURE

REACTIONS (2)
  - DRUG INEFFECTIVE [None]
  - CHEST PAIN [None]
